FAERS Safety Report 5473504-0 (Version None)
Quarter: 2007Q3

REPORT INFORMATION
  Report Type: 
  Country: None (occurrence: None)
  Receive Date: 20070830
  Receipt Date: 20070131
  Transmission Date: 20080115
  Serious: Yes (Other)
  Sender: FDA-Public Use
  Company Number: KADN20070031

PATIENT
  Sex: Female

DRUGS (3)
  1. KADIAN [Suspect]
  2. MORPHINE SULFATE [Suspect]
  3. OXYCODONE UNK [Suspect]

REACTIONS (6)
  - DIZZINESS [None]
  - MOOD SWINGS [None]
  - NAUSEA [None]
  - PHARMACEUTICAL PRODUCT COMPLAINT [None]
  - SOMNOLENCE [None]
  - VOMITING [None]
